FAERS Safety Report 9515121 (Version 1)
Quarter: 2013Q1

REPORT INFORMATION
  Report Type: Spontaneous
  Country: US (occurrence: None)
  Receive Date: 20130305
  Receipt Date: 20130305
  Transmission Date: 20140127
  Serious: Yes (Hospitalization)
  Sender: FDA-Public Use
  Company Number: 163-21880-12121065

PATIENT
  Age: 89 Year
  Sex: Female

DRUGS (1)
  1. REVLIMID (LENALIDOMIDE) (CAPSULES) [Suspect]
     Indication: PLASMA CELL MYELOMA
     Dosage: 2.5 MG, 21 IN 28 D, PO
     Route: 048
     Dates: start: 20120625

REACTIONS (1)
  - Dehydration [None]
